FAERS Safety Report 6274601-2 (Version None)
Quarter: 2009Q3

REPORT INFORMATION
  Report Type: 
  Country: None (occurrence: None)
  Receive Date: 20090717
  Receipt Date: 20090706
  Transmission Date: 20100115
  Serious: Yes (Death, Hospitalization)
  Sender: FDA-Public Use
  Company Number: 2008AL011373

PATIENT
  Age: 73 Year
  Sex: Female

DRUGS (27)
  1. DIGOXIN [Suspect]
     Dosage: 0.25MG, DAILY, PO
     Route: 048
     Dates: start: 20070403
  2. GLYBURIDE [Concomitant]
  3. SYNTHROID [Concomitant]
  4. HUMULIN N [Concomitant]
  5. FELDENE [Concomitant]
  6. NABUMETONE [Concomitant]
  7. NORTRIPTYLINE HCL [Concomitant]
  8. LORTAB [Concomitant]
  9. METHYLDOPA [Concomitant]
  10. LASIX [Concomitant]
  11. PAMELOR [Concomitant]
  12. FENTANYL-100 [Concomitant]
  13. BUSPAR [Concomitant]
  14. ZYPREXA [Concomitant]
  15. ACTOS [Concomitant]
  16. SEROQUEL [Concomitant]
  17. BUMEX [Concomitant]
  18. PROTONIX [Concomitant]
  19. COREG [Concomitant]
  20. DUONEB [Concomitant]
  21. VANCOMYCIN [Concomitant]
  22. MAXIPIME [Concomitant]
  23. PHENERGAN [Concomitant]
  24. LEVAQUIN [Concomitant]
  25. PROCRIT [Concomitant]
  26. LOVENOX [Concomitant]
  27. NOVOLIN R [Concomitant]

REACTIONS (48)
  - ANXIETY [None]
  - ARTHRALGIA [None]
  - ASTHENIA [None]
  - ATRIOVENTRICULAR BLOCK FIRST DEGREE [None]
  - BACK PAIN [None]
  - BLOOD GLUCOSE INCREASED [None]
  - BRADYARRHYTHMIA [None]
  - BRONCHIAL SECRETION RETENTION [None]
  - CARDIAC FAILURE CONGESTIVE [None]
  - CARDIAC FLUTTER [None]
  - CARDIOMEGALY [None]
  - DECREASED APPETITE [None]
  - DEPRESSION [None]
  - DIALYSIS [None]
  - DIZZINESS [None]
  - DYSPNOEA EXERTIONAL [None]
  - ELECTROCARDIOGRAM ST-T CHANGE [None]
  - EMOTIONAL DISTRESS [None]
  - ENDOCARDITIS BACTERIAL [None]
  - EXERCISE ELECTROCARDIOGRAM ABNORMAL [None]
  - EXTRASYSTOLES [None]
  - GASTROOESOPHAGEAL REFLUX DISEASE [None]
  - HYPOTHERMIA [None]
  - INJURY [None]
  - INSOMNIA [None]
  - LEFT VENTRICULAR HYPERTROPHY [None]
  - LETHARGY [None]
  - LOOSE TOOTH [None]
  - MALAISE [None]
  - MENTAL STATUS CHANGES [None]
  - NERVOUSNESS [None]
  - OEDEMA PERIPHERAL [None]
  - PAIN [None]
  - PAIN IN JAW [None]
  - PALPITATIONS [None]
  - PANIC ATTACK [None]
  - PERICARDIAL EFFUSION [None]
  - PLEURAL EFFUSION [None]
  - PNEUMONIA [None]
  - PULSE PRESSURE DECREASED [None]
  - PURPURA [None]
  - REFUSAL OF TREATMENT BY PATIENT [None]
  - RENAL FAILURE [None]
  - RESPIRATORY ACIDOSIS [None]
  - SINUS BRADYCARDIA [None]
  - TEARFULNESS [None]
  - TENDERNESS [None]
  - THERAPEUTIC AGENT TOXICITY [None]
